FAERS Safety Report 4736514-4 (Version None)
Quarter: 2005Q3

REPORT INFORMATION
  Report Type: 
  Country: None (occurrence: None)
  Receive Date: 20050802
  Receipt Date: 20050720
  Transmission Date: 20060218
  Serious: Yes (Hospitalization)
  Sender: FDA-Public Use
  Company Number: 2005092518

PATIENT
  Age: 53 Year
  Sex: Female
  Weight: 51.5 kg

DRUGS (10)
  1. AROMASIN [Suspect]
     Indication: OVARIAN CANCER
     Dosage: 25 MG (25 MG, 1 IN 1 D), ORAL
     Route: 048
     Dates: start: 20050617, end: 20050621
  2. METOCLOPRAMIDE HYDROCHLORIDE [Concomitant]
  3. ELTROXIN (LEVOTHYROXINE SODIUM) [Concomitant]
  4. DALTREPARIN (DALTTREPARIN) [Concomitant]
  5. FENTANYL CITRATE [Concomitant]
  6. MORPHINE [Concomitant]
  7. INNOHEP [Concomitant]
  8. SENOKOT [Concomitant]
  9. COLACE (EOCUSATE SODIUM) [Concomitant]
  10. LACTULOSE [Concomitant]

REACTIONS (6)
  - CHEST PAIN [None]
  - DEEP VEIN THROMBOSIS [None]
  - DYSPNOEA [None]
  - OEDEMA PERIPHERAL [None]
  - PAIN IN EXTREMITY [None]
  - PULMONARY EMBOLISM [None]
